FAERS Safety Report 19141498 (Version 7)
Quarter: 2025Q1

REPORT INFORMATION
  Report Type: Report from Study
  Country: US (occurrence: US)
  Receive Date: 20210415
  Receipt Date: 20250107
  Transmission Date: 20250408
  Serious: Yes (Hospitalization)
  Sender: TAKEDA
  Company Number: US-TAKEDA-US202003058

PATIENT
  Age: 11 Year
  Sex: Male

DRUGS (5)
  1. IDURSULFASE [Suspect]
     Active Substance: IDURSULFASE
     Indication: Mucopolysaccharidosis
     Dosage: 18 MILLIGRAM, 1/WEEK
     Dates: start: 20190814
  2. IDURSULFASE [Suspect]
     Active Substance: IDURSULFASE
     Indication: Mucopolysaccharidosis II
     Dosage: 18 MILLIGRAM, 1/WEEK
     Dates: start: 201908
  3. IDURSULFASE [Suspect]
     Active Substance: IDURSULFASE
     Dosage: 18 GRAM, 1/WEEK
     Dates: start: 20200715
  4. IDURSULFASE [Suspect]
     Active Substance: IDURSULFASE
     Dosage: 18 MILLIGRAM, 1/WEEK
     Dates: start: 202204
  5. LIDOCAINE\PRILOCAINE [Concomitant]
     Active Substance: LIDOCAINE\PRILOCAINE

REACTIONS (9)
  - Tooth disorder [Unknown]
  - Swelling face [Unknown]
  - Urticaria [Unknown]
  - Nasopharyngitis [Unknown]
  - Mucopolysaccharidosis II [Unknown]
  - Malaise [Unknown]
  - Illness [Unknown]
  - Product dose omission issue [Unknown]
  - Weight increased [Unknown]

NARRATIVE: CASE EVENT DATE: 20241003
